FAERS Safety Report 8016427-5 (Version None)
Quarter: 2011Q4

REPORT INFORMATION
  Report Type: 
  Country: None (occurrence: None)
  Receive Date: 20111230
  Receipt Date: 20111221
  Transmission Date: 20120403
  Serious: Yes (Hospitalization)
  Sender: FDA-Public Use
  Company Number: US-ELI_LILLY_AND_COMPANY-US201112007289

PATIENT
  Sex: Male

DRUGS (5)
  1. ZYPREXA [Suspect]
     Indication: SCHIZOPHRENIA, PARANOID TYPE
     Dosage: 20 MG, QD
     Dates: start: 20110401
  2. ZYPREXA RELPREVV [Suspect]
     Indication: SCHIZOPHRENIA, PARANOID TYPE
     Dosage: 405 MG, EVERY THREE WEEKS
     Route: 030
     Dates: start: 20110601
  3. COGENTIN [Concomitant]
  4. CLONAZEPAM [Concomitant]
  5. LISINOPRIL [Concomitant]

REACTIONS (2)
  - SCHIZOPHRENIA [None]
  - OVERDOSE [None]
